FAERS Safety Report 5836205-2 (Version None)
Quarter: 2008Q3

REPORT INFORMATION
  Report Type: 
  Country: None (occurrence: None)
  Receive Date: 20080805
  Receipt Date: 20080730
  Transmission Date: 20090109
  Serious: Yes (Hospitalization)
  Sender: FDA-Public Use
  Company Number: 2008SP015629

PATIENT
  Age: 33 Year
  Sex: Male

DRUGS (3)
  1. TEMOZOLOMIDE [Suspect]
     Indication: ANAPLASTIC ASTROCYTOMA
     Dosage: 200 MG/M2; QD; PO,; PO
     Route: 048
  2. DEXAMETHASONE TAB [Suspect]
     Indication: DRUG USE FOR UNKNOWN INDICATION
     Dosage: 2 MG; Q12H;, 1 MG; Q8H;
  3. CCNU [Concomitant]

REACTIONS (25)
  - BALANCE DISORDER [None]
  - BLOOD CREATININE INCREASED [None]
  - BLOOD CULTURE POSITIVE [None]
  - CONFUSIONAL STATE [None]
  - DEAFNESS UNILATERAL [None]
  - DIPLOPIA [None]
  - DISEASE PROGRESSION [None]
  - DISORIENTATION [None]
  - DIZZINESS [None]
  - DYSARTHRIA [None]
  - FUNGAL INFECTION [None]
  - HEADACHE [None]
  - MENINGITIS CRYPTOCOCCAL [None]
  - NAUSEA [None]
  - NEUROPATHY PERIPHERAL [None]
  - OPPORTUNISTIC INFECTION [None]
  - OPTIC ATROPHY [None]
  - PARAESTHESIA [None]
  - PHOTOPHOBIA [None]
  - PULMONARY EMBOLISM [None]
  - SCOTOMA [None]
  - TINNITUS [None]
  - VERTIGO [None]
  - VOMITING [None]
  - WHITE BLOOD CELL COUNT DECREASED [None]
